FAERS Safety Report 23124775 (Version 1)
Quarter: 2023Q4

REPORT INFORMATION
  Report Type: Spontaneous
  Country: US (occurrence: US)
  Receive Date: 20231030
  Receipt Date: 20231030
  Transmission Date: 20240110
  Serious: No
  Sender: FDA-Public Use
  Company Number: US-BIOGEN-2022BI01104777

PATIENT
  Age: 47 Year
  Sex: Female

DRUGS (3)
  1. PLEGRIDY [Suspect]
     Active Substance: PEGINTERFERON BETA-1A
     Indication: Multiple sclerosis
     Dosage: 94 MCG AND THEN 125 MCG AS PER TITRATION SCHEDULE
     Route: 050
     Dates: start: 20220304, end: 20230930
  2. PLEGRIDY [Suspect]
     Active Substance: PEGINTERFERON BETA-1A
     Route: 050
  3. PLEGRIDY [Suspect]
     Active Substance: PEGINTERFERON BETA-1A
     Route: 050

REACTIONS (15)
  - Injection site swelling [Unknown]
  - Muscular weakness [Unknown]
  - Erythema [Unknown]
  - Muscle spasticity [Recovered/Resolved]
  - Loss of control of legs [Recovered/Resolved]
  - Injection site rash [Not Recovered/Not Resolved]
  - Injection site pruritus [Not Recovered/Not Resolved]
  - Injection site erythema [Unknown]
  - Injection site warmth [Unknown]
  - Pruritus [Unknown]
  - Pyrexia [Recovered/Resolved]
  - Chills [Recovered/Resolved]
  - Asthenia [Recovered/Resolved]
  - Headache [Recovered/Resolved]
  - Influenza like illness [Recovered/Resolved]

NARRATIVE: CASE EVENT DATE: 20220301
